FAERS Safety Report 24463175 (Version 1)
Quarter: 2024Q4

REPORT INFORMATION
  Report Type: Report from Study
  Country: US (occurrence: US)
  Receive Date: 20241018
  Receipt Date: 20241018
  Transmission Date: 20250115
  Serious: No
  Sender: ROCHE
  Company Number: US-ROCHE-2738387

PATIENT
  Age: 65 Year
  Sex: Female
  Weight: 80.0 kg

DRUGS (18)
  1. XOLAIR [Suspect]
     Active Substance: OMALIZUMAB
     Indication: Asthma
     Dosage: 75 MG PREFILLED SYRINGE, 300 MG EVERY TWO WEEKS, LAST INJECTION DATE: 03/JAN/2023
     Route: 058
  2. XOLAIR [Suspect]
     Active Substance: OMALIZUMAB
     Dosage: 150 MG EVERY 2 WEEKS
     Route: 058
     Dates: start: 202003
  3. AZELASTINE [Concomitant]
     Active Substance: AZELASTINE
     Dosage: SPRAY 2 SPRAY BY INTRANASAL ROUTE 2 TIMES EVERY DAY IN EACH NOSTRIL
     Route: 045
  4. CLOBETASOL [Concomitant]
     Active Substance: CLOBETASOL
     Dosage: APPLY BY TOPICAL ROUTE 2 TIMES EVERY DAY A THIN LAYER TO THE AFFECTED AREA
     Route: 061
  5. EPIPEN [Concomitant]
     Active Substance: EPINEPHRINE
     Indication: Anaphylactic reaction
     Dosage: INJECT 0.3 MILLIMETER BY INTRAMUSCULAR ROUTE ONCE AS NEEDED FOR ANAPHYLAXIS
     Route: 030
  6. ESTRADIOL [Concomitant]
     Active Substance: ESTRADIOL
     Dosage: INSERT BY VAGINAL ROUTE EVERY WEEK
     Route: 067
  7. FLOVENT HFA [Concomitant]
     Active Substance: FLUTICASONE PROPIONATE
     Dosage: INHALE 1 PUFF BY INHALATION ROUTE 2 TIMES EVERY DAY
  8. FLUTICASONE PROPIONATE\SALMETEROL XINAFOATE [Concomitant]
     Active Substance: FLUTICASONE PROPIONATE\SALMETEROL XINAFOATE
     Dosage: 232 MCG-14 MCG/ACTUATION, INHALE 1 PUFF BY INHALATION ROUTE 2 TIMES EVERY DAY APPROXIMATELY 12 HOURS
  9. FLUTICASONE PROPIONATE [Concomitant]
     Active Substance: FLUTICASONE PROPIONATE
     Dosage: SPRAY 1 SPRAY BY INTRANASAL ROUTE 2 TIMES EVERY DAY IN EACH NOSTRIL
     Route: 045
  10. GLUCOSAMINE [Concomitant]
     Active Substance: GLUCOSAMINE
     Dosage: 500 MG-MSM 83 MG-CHONDROITIN 400 MG TABLET
     Route: 048
  11. INDAPAMIDE [Concomitant]
     Active Substance: INDAPAMIDE
     Dosage: TAKE 1 TABLET BY ORAL ROUTE EVERY DAY IN THE MORNING
     Route: 048
  12. ALBUTEROL\IPRATROPIUM [Concomitant]
     Active Substance: ALBUTEROL\IPRATROPIUM
     Dosage: (2.5 MG BASE) 3 ML NEBULIZATION SOLUTION?0.5 MG / 3 MG
  13. MAGNESIUM CITRATE [Concomitant]
     Active Substance: MAGNESIUM CITRATE
  14. MONTELUKAST [Concomitant]
     Active Substance: MONTELUKAST
     Dosage: EVERY DAY IN THE EVENING
     Route: 048
  15. OMEPRAZOLE [Concomitant]
     Active Substance: OMEPRAZOLE
     Dosage: TAKE 1 CAPSULE BY ORAL ROUTE EVERY DAY BEFORE A MEAL
     Route: 048
  16. TRAZODONE [Concomitant]
     Active Substance: TRAZODONE HYDROCHLORIDE
     Dosage: TAKE 1 TABLET BY ORAL ROUTE EVERY DAY AT BEDTIME
     Route: 048
  17. VITAMIN D3 [Concomitant]
     Active Substance: CHOLECALCIFEROL
     Dosage: TAKE 1 BY ORAL ROUTE ONCE
     Route: 048
  18. ZYRTEC [Concomitant]
     Active Substance: CETIRIZINE HYDROCHLORIDE
     Dosage: TAKE 1 TABLET BY ORAL ROUTE EVERY DAY
     Route: 048

REACTIONS (2)
  - Asthma [Unknown]
  - Off label use [Unknown]
